FAERS Safety Report 10354449 (Version 3)
Quarter: 2014Q3

REPORT INFORMATION
  Report Type: Report from Study
  Country: JP (occurrence: JP)
  Receive Date: 20140731
  Receipt Date: 20140904
  Transmission Date: 20150326
  Serious: Yes (Hospitalization)
  Sender: FDA-Public Use
  Company Number: JP-ELI_LILLY_AND_COMPANY-JP201404006505

PATIENT
  Age: 61 Year
  Sex: Male
  Weight: 69.1 kg

DRUGS (14)
  1. DOCETAXEL [Suspect]
     Active Substance: DOCETAXEL
     Dosage: 88 MG, EVERY THREE WEEKS
     Route: 042
     Dates: start: 20130924, end: 20140218
  2. CODEINE PHOSPHATE [Concomitant]
     Active Substance: CODEINE PHOSPHATE
     Indication: COUGH
     Dosage: 1 DF, TID
     Route: 048
     Dates: start: 20140207
  3. MAGMITT [Concomitant]
     Active Substance: MAGNESIUM OXIDE
     Dosage: 2 DF, TID
     Route: 048
     Dates: start: 20140218
  4. THYRADIN S [Concomitant]
     Active Substance: LEVOTHYROXINE SODIUM
     Indication: HYPOTHYROIDISM
     Dosage: 4 DF, QD
     Route: 048
     Dates: start: 20140226
  5. DOCETAXEL [Suspect]
     Active Substance: DOCETAXEL
     Indication: NON-SMALL CELL LUNG CANCER STAGE IV
     Dosage: 110 MG, EVERY THREE WEEKS
     Route: 042
     Dates: start: 20130730
  6. MAGMITT [Concomitant]
     Active Substance: MAGNESIUM OXIDE
     Indication: CONSTIPATION
     Dosage: 1 DF, TID
     Route: 048
     Dates: start: 20130709, end: 20140217
  7. TAKEPRON [Concomitant]
     Active Substance: LANSOPRAZOLE
     Indication: PROPHYLAXIS AGAINST GASTROINTESTINAL ULCER
     Dosage: 1 DF, QD
     Route: 048
     Dates: start: 20130718
  8. IDOMETHINE [Concomitant]
     Active Substance: INDOMETHACIN
     Indication: MYALGIA
     Dosage: 1 DF, QD
     Route: 062
     Dates: start: 20130714
  9. LOXONIN [Concomitant]
     Active Substance: LOXOPROFEN SODIUM
     Indication: MYALGIA
     Dosage: UNK, PRN
     Route: 048
     Dates: start: 20130802
  10. RAMUCIRUMAB [Suspect]
     Active Substance: RAMUCIRUMAB
     Indication: NON-SMALL CELL LUNG CANCER STAGE IV
     Dosage: 762 MG, EVERY THREE WEEKS
     Route: 042
     Dates: start: 20130730, end: 20140218
  11. FERROMIA                           /00023516/ [Concomitant]
     Active Substance: FERROUS CITRATE
     Indication: ANAEMIA
     Dosage: 2 DF, QD
     Route: 048
     Dates: start: 20130716
  12. FLOXIN [Concomitant]
     Active Substance: OFLOXACIN
     Indication: DRY SKIN
     Dosage: UNK, QD
     Route: 062
     Dates: start: 20140220
  13. LASIX [Concomitant]
     Active Substance: FUROSEMIDE
     Indication: OEDEMA
     Dosage: 1 DF, QD
     Route: 048
     Dates: start: 20140226
  14. NIFLAN [Concomitant]
     Indication: CONJUNCTIVITIS
     Dosage: UNK, BID
     Route: 047
     Dates: start: 20131105

REACTIONS (1)
  - Hepatic cirrhosis [Not Recovered/Not Resolved]

NARRATIVE: CASE EVENT DATE: 20140417
